FAERS Safety Report 7585754-8 (Version None)
Quarter: 2011Q2

REPORT INFORMATION
  Report Type: 
  Country: None (occurrence: None)
  Receive Date: 20110624
  Receipt Date: 20110610
  Transmission Date: 20111010
  Serious: Yes (Death, Hospitalization)
  Sender: FDA-Public Use
  Company Number: 2011MA007080

PATIENT
  Age: 78 Year
  Sex: Female

DRUGS (2)
  1. SULFATRIM [Suspect]
     Indication: ENDOCARDITIS
     Dosage: 160 MG;Q8;IV
     Route: 042
  2. SULFATRIM [Suspect]
     Indication: STENOTROPHOMONAS INFECTION
     Dosage: 160 MG;Q8;IV
     Route: 042

REACTIONS (8)
  - DECREASED APPETITE [None]
  - CEREBRAL ARTERY EMBOLISM [None]
  - HEMIPARESIS [None]
  - RENAL IMPAIRMENT [None]
  - PANCREATITIS [None]
  - NAUSEA [None]
  - MITRAL VALVE REPLACEMENT [None]
  - PANCYTOPENIA [None]
